FAERS Safety Report 8990360 (Version 1)
Quarter: 2012Q4

REPORT INFORMATION
  Report Type: 
  Country: US (occurrence: US)
  Receive Date: 20121228
  Receipt Date: 20121228
  Transmission Date: 20130627
  Serious: Yes (Other)
  Sender: FDA-Public Use
  Company Number: US-SANOFI-AVENTIS-2012SA094817

PATIENT
  Age: 87 Year
  Sex: Female

DRUGS (3)
  1. MULTAQ [Suspect]
     Indication: ATRIAL FIBRILLATION
     Route: 048
     Dates: start: 201211
  2. METOPROLOL [Concomitant]
     Dates: start: 2002
  3. DABIGATRAN ETEXILATE [Concomitant]

REACTIONS (5)
  - Back disorder [Unknown]
  - Atrial fibrillation [Unknown]
  - Decreased appetite [Unknown]
  - Weight decreased [Unknown]
  - Asthenia [Unknown]
